FAERS Safety Report 23315973 (Version 1)
Quarter: 2023Q4

REPORT INFORMATION
  Report Type: Spontaneous
  Country: KR (occurrence: KR)
  Receive Date: 20231219
  Receipt Date: 20231219
  Transmission Date: 20240109
  Serious: Yes (Other)
  Sender: FDA-Public Use
  Company Number: KR-PFIZER INC-202200329760

PATIENT
  Age: 57 Year
  Sex: Female
  Weight: 62 kg

DRUGS (4)
  1. LYRICA [Suspect]
     Active Substance: PREGABALIN
     Indication: Oral pain
     Dosage: 25 MG, 2X/DAY
     Route: 048
     Dates: start: 202112
  2. LYRICA [Suspect]
     Active Substance: PREGABALIN
     Indication: Neuralgia
     Dosage: 50 MG, 2X/DAY
     Route: 048
     Dates: start: 202112
  3. LYRICA [Suspect]
     Active Substance: PREGABALIN
     Dosage: 25 MG, 3X/DAY
     Route: 048
  4. NAFTOPIDIL [Concomitant]
     Active Substance: NAFTOPIDIL
     Indication: Cystitis
     Dosage: UNK
     Route: 065
     Dates: start: 20220225

REACTIONS (8)
  - Urinary retention [Not Recovered/Not Resolved]
  - Headache [Unknown]
  - Swelling face [Recovering/Resolving]
  - Swelling of eyelid [Not Recovered/Not Resolved]
  - Weight increased [Recovering/Resolving]
  - Lip swelling [Not Recovered/Not Resolved]
  - Generalised oedema [Recovering/Resolving]
  - Off label use [Unknown]

NARRATIVE: CASE EVENT DATE: 20211201
